FAERS Safety Report 7794603-4 (Version None)
Quarter: 2011Q4

REPORT INFORMATION
  Report Type: 
  Country: None (occurrence: None)
  Receive Date: 20111004
  Receipt Date: 20110921
  Transmission Date: 20120403
  Serious: Yes (Hospitalization)
  Sender: FDA-Public Use
  Company Number: AU-TYCO HEALTHCARE/MALLINCKRODT-T201101936

PATIENT
  Age: 53 Year
  Sex: Female

DRUGS (4)
  1. CIPRAMIL                           /00582601/ [Concomitant]
  2. UNSPECIFIED NEBULIZER [Concomitant]
  3. EXALGO [Suspect]
     Dosage: 16 MG, UNK
     Route: 048
  4. PANADEINE CO [Concomitant]

REACTIONS (4)
  - OVERDOSE [None]
  - DRUG EFFECT DECREASED [None]
  - INAPPROPRIATE SCHEDULE OF DRUG ADMINISTRATION [None]
  - HYPERVENTILATION [None]
